FAERS Safety Report 17015835 (Version 1)
Quarter: 2019Q4

REPORT INFORMATION
  Report Type: Spontaneous
  Country: US (occurrence: US)
  Receive Date: 20191003
  Receipt Date: 20191003
  Transmission Date: 20200122
  Serious: Yes (Life-Threatening, Hospitalization)
  Sender: FDA-Public Use
  Company Number: None

PATIENT
  Age: 81 Year
  Sex: Male
  Weight: 90.26 kg

DRUGS (6)
  1. VITAMIN D3 [Concomitant]
     Active Substance: CHOLECALCIFEROL
  2. VITAMIN E [Concomitant]
     Active Substance: .ALPHA.-TOCOPHEROL
  3. TIMOLOL EYE DROPS AL SOL 0.5% [Suspect]
     Active Substance: TIMOLOL
     Indication: GLAUCOMA
     Dosage: ?          QUANTITY:0.5 % PERCENT;?
     Route: 047
     Dates: start: 20180812, end: 20180814
  4. VITAMIN C [Concomitant]
     Active Substance: ASCORBIC ACID
  5. FLUTICASONE SPRAY [Concomitant]
     Active Substance: FLUTICASONE
  6. ARESPS2 [Concomitant]

REACTIONS (1)
  - Syncope [None]

NARRATIVE: CASE EVENT DATE: 20190813
